FAERS Safety Report 15036128 (Version 9)
Quarter: 2019Q1

REPORT INFORMATION
  Report Type: Spontaneous
  Country: CA (occurrence: CA)
  Receive Date: 20180620
  Receipt Date: 20190206
  Transmission Date: 20190417
  Serious: Yes (Other)
  Sender: FDA-Public Use
  Company Number: CA-CELLTRION INC.-2018CA020603

PATIENT

DRUGS (13)
  1. INFLECTRA [Suspect]
     Active Substance: INFLIXIMAB-DYYB
     Dosage: 300 MG, 0, 2, WEEK THEN EVERY 8 WEEKS
     Route: 042
     Dates: start: 20180611
  2. INFLECTRA [Suspect]
     Active Substance: INFLIXIMAB-DYYB
     Dosage: 300 MG, 0, 2, THEN EVERY 8 WEEKS
     Route: 042
     Dates: start: 20181109
  3. METHOTREXATE. [Concomitant]
     Active Substance: METHOTREXATE
     Dosage: 2.5 MG - 8 TABLETS
  4. INFLECTRA [Suspect]
     Active Substance: INFLIXIMAB-DYYB
     Indication: RHEUMATOID ARTHRITIS
     Dosage: 300 MG, 0, 2, THEN EVERY 8 WEEKS
     Route: 042
     Dates: start: 20180430
  5. INFLECTRA [Suspect]
     Active Substance: INFLIXIMAB-DYYB
     Dosage: 300 MG, 0, 2, WEEK THEN EVERY 8 WEEKS
     Route: 042
     Dates: start: 20180928
  6. ADVIL [Concomitant]
     Active Substance: IBUPROFEN
     Dosage: UNK, AS NEEDED
  7. HYDROXYCHLOROQUINE [Concomitant]
     Active Substance: HYDROXYCHLOROQUINE
     Dosage: 400 MG
  8. ARAVA [Concomitant]
     Active Substance: LEFLUNOMIDE
     Dosage: 20 MG
  9. INFLECTRA [Suspect]
     Active Substance: INFLIXIMAB-DYYB
     Dosage: 300 MG, 0, 2, THEN EVERY 8 WEEKS
     Route: 042
     Dates: start: 20181214
  10. INFLECTRA [Suspect]
     Active Substance: INFLIXIMAB-DYYB
     Dosage: 252 MG EVERY 6 WEEKS
     Route: 042
     Dates: start: 20190124
  11. NAPROXEN. [Concomitant]
     Active Substance: NAPROXEN
     Dosage: UNK
  12. INFLECTRA [Suspect]
     Active Substance: INFLIXIMAB-DYYB
     Dosage: 300 MG, 0, 2, WEEKS THEN EVERY 8 WEEKS
     Route: 042
     Dates: start: 20180514
  13. FOLIC ACID. [Concomitant]
     Active Substance: FOLIC ACID
     Dosage: UNK

REACTIONS (9)
  - Heart rate irregular [Unknown]
  - Joint injury [Recovering/Resolving]
  - Hair texture abnormal [Unknown]
  - Erythema [Unknown]
  - Weight increased [Unknown]
  - Product use issue [Unknown]
  - Dry skin [Unknown]
  - Pruritus [Recovered/Resolved]
  - Pain [Unknown]

NARRATIVE: CASE EVENT DATE: 20180514
